FAERS Safety Report 11662389 (Version 1)
Quarter: 2015Q4

REPORT INFORMATION
  Report Type: Spontaneous
  Country: US (occurrence: US)
  Receive Date: 20151027
  Receipt Date: 20151027
  Transmission Date: 20160304
  Serious: Yes (Death, Hospitalization, Other)
  Sender: FDA-Public Use
  Company Number: US-DRREDDYS-USA/USA/15/0053508

PATIENT
  Age: 28 Year
  Sex: Male

DRUGS (2)
  1. VALDECOXIB [Suspect]
     Active Substance: VALDECOXIB
     Indication: CONTUSION
     Dosage: DURING DAYS 76-139
  2. IBUPROFEN. [Suspect]
     Active Substance: IBUPROFEN
     Indication: CONTUSION
     Dosage: DURING DAYS 0-19,
     Route: 065

REACTIONS (5)
  - Hypertension [Unknown]
  - Blood glucose increased [Unknown]
  - Coma [Unknown]
  - Chronic kidney disease [Fatal]
  - Cerebral haemorrhage [Unknown]
